FAERS Safety Report 7631423-5 (Version None)
Quarter: 2011Q3

REPORT INFORMATION
  Report Type: 
  Country: None (occurrence: None)
  Receive Date: 20110725
  Receipt Date: 20110718
  Transmission Date: 20111222
  Serious: No
  Sender: FDA-Public Use
  Company Number: US-ELI_LILLY_AND_COMPANY-US201105005618

PATIENT
  Sex: Male

DRUGS (3)
  1. HUMALOG [Suspect]
     Dosage: 11 U, UNK
  2. HUMALOG [Suspect]
     Indication: DIABETES MELLITUS
     Dosage: UNK UNK, PRN
  3. LANTUS [Concomitant]
     Dosage: 20 U, UNK

REACTIONS (3)
  - INCORRECT PRODUCT STORAGE [None]
  - BLOOD GLUCOSE INCREASED [None]
  - DRUG INEFFECTIVE [None]
